FAERS Safety Report 19440102 (Version 1)
Quarter: 2021Q2

REPORT INFORMATION
  Report Type: Report from Study
  Country: None (occurrence: US)
  Receive Date: 20210620
  Receipt Date: 20210620
  Transmission Date: 20210717
  Serious: Yes (Hospitalization)
  Sender: FDA-Public Use
  Company Number: US-ABBVIE-21K-163-3949616-00

PATIENT
  Age: 72 Year
  Sex: Male
  Weight: 113.5 kg

DRUGS (5)
  1. VENCLEXTA [Suspect]
     Active Substance: VENETOCLAX
     Indication: ACUTE MYELOID LEUKAEMIA
     Route: 048
     Dates: start: 202104
  2. VENCLEXTA [Suspect]
     Active Substance: VENETOCLAX
     Route: 048
     Dates: start: 202104
  3. COVID?19 VACCINE [Concomitant]
     Dosage: MODERNA
     Route: 030
     Dates: start: 20210214, end: 20210214
  4. COVID?19 VACCINE [Concomitant]
     Indication: COVID-19 IMMUNISATION
     Dosage: MODERNA
     Route: 030
     Dates: start: 20210117, end: 20210117
  5. VENCLEXTA [Suspect]
     Active Substance: VENETOCLAX
     Route: 048
     Dates: start: 20210305, end: 202104

REACTIONS (8)
  - Swelling [Not Recovered/Not Resolved]
  - Colitis [Recovered/Resolved]
  - Swelling [Unknown]
  - Papule [Not Recovered/Not Resolved]
  - Platelet count increased [Not Recovered/Not Resolved]
  - Papule [Recovered/Resolved]
  - Hospitalisation [Unknown]
  - Abdominal pain [Recovered/Resolved]

NARRATIVE: CASE EVENT DATE: 2021
